FAERS Safety Report 17246542 (Version 3)
Quarter: 2020Q2

REPORT INFORMATION
  Report Type: Report from Study
  Country: EG (occurrence: EG)
  Receive Date: 20200108
  Receipt Date: 20200406
  Transmission Date: 20200713
  Serious: Yes (Other)
  Sender: FDA-Public Use
  Company Number: NVSC2020EG002637

PATIENT
  Age: 11 Year
  Sex: Female

DRUGS (1)
  1. JADENU [Suspect]
     Active Substance: DEFERASIROX
     Indication: CHELATION THERAPY
     Dosage: (ONE TABLET OF 360 MG AND ONE TABLET OF 180 PER DAY)
     Route: 048
     Dates: start: 20191031

REACTIONS (3)
  - Angina pectoris [Recovered/Resolved]
  - Syncope [Recovered/Resolved]
  - Serum ferritin increased [Unknown]

NARRATIVE: CASE EVENT DATE: 201912
